FAERS Safety Report 26021718 (Version 2)
Quarter: 2025Q4

REPORT INFORMATION
  Report Type: Report from Study
  Country: US (occurrence: US)
  Receive Date: 20251110
  Receipt Date: 20251111
  Transmission Date: 20260118
  Serious: Yes (Death, Other)
  Sender: BIOVITRUM
  Company Number: US-BIOVITRUM-2025-US-015578

PATIENT
  Age: 79 Year
  Sex: Male

DRUGS (1)
  1. DOPTELET [Suspect]
     Active Substance: AVATROMBOPAG MALEATE
     Indication: Immune thrombocytopenia
     Dosage: 1 TAB ON MONDAY,WEDNESDAY,FRIDAY
     Route: 048

REACTIONS (1)
  - Death [Fatal]
